FAERS Safety Report 25885861 (Version 5)
Quarter: 2025Q4

REPORT INFORMATION
  Report Type: Report from Study
  Country: EU (occurrence: EU)
  Receive Date: 20251006
  Receipt Date: 20251022
  Transmission Date: 20260118
  Serious: Yes (Hospitalization)
  Sender: ABBVIE
  Company Number: EU-ABBVIE-6489748

PATIENT
  Age: 62 Year
  Sex: Male

DRUGS (2)
  1. FOSCARBIDOPA\FOSLEVODOPA [Suspect]
     Active Substance: FOSCARBIDOPA\FOSLEVODOPA
     Indication: Parkinson^s disease
     Dosage: DOSAGE: CRN: 0.18 ML/H, CR: 0.28 ML/H, CRH: 0.30 ML/H
     Route: 058
     Dates: start: 20250929, end: 20251006
  2. FOSCARBIDOPA\FOSLEVODOPA [Suspect]
     Active Substance: FOSCARBIDOPA\FOSLEVODOPA
     Route: 058
     Dates: start: 202510

REACTIONS (5)
  - Pulmonary embolism [Unknown]
  - Hallucination [Recovering/Resolving]
  - Aggression [Recovered/Resolved]
  - On and off phenomenon [Recovering/Resolving]
  - Psychotic disorder [Recovered/Resolved]

NARRATIVE: CASE EVENT DATE: 20250101
